FAERS Safety Report 7266870-7 (Version None)
Quarter: 2011Q1

REPORT INFORMATION
  Report Type: 
  Country: None (occurrence: None)
  Receive Date: 20110201
  Receipt Date: 20110125
  Transmission Date: 20110831
  Serious: Yes (Hospitalization, Other)
  Sender: FDA-Public Use
  Company Number: CHPA2011US01476

PATIENT
  Age: 64 Year
  Sex: Male

DRUGS (9)
  1. PLAVIX [Concomitant]
  2. MULTI-VITAMINS [Concomitant]
  3. LIPITOR [Concomitant]
  4. BENEFIBER W/ WHEAT DEXTRIN [Suspect]
     Indication: MEDICAL DIET
     Dosage: 3 TSP, QD
     Route: 048
     Dates: start: 20110101
  5. ZANTAC [Concomitant]
  6. FISH OIL [Concomitant]
  7. ASPIRIN [Concomitant]
  8. ATENOLOL [Concomitant]
  9. BENEFIBER W/ WHEAT DEXTRIN [Suspect]
     Dosage: 1 HEAPING TBSP, ONCE OR TWICE A WEEK
     Route: 048

REACTIONS (6)
  - CORONARY ARTERIAL STENT INSERTION [None]
  - HYPERTENSION [None]
  - DIARRHOEA [None]
  - INCORRECT DOSE ADMINISTERED [None]
  - OFF LABEL USE [None]
  - DIVERTICULUM [None]
